FAERS Safety Report 25072155 (Version 1)
Quarter: 2025Q1

REPORT INFORMATION
  Report Type: Report from Study
  Country: US (occurrence: US)
  Receive Date: 20250313
  Receipt Date: 20250313
  Transmission Date: 20250409
  Serious: No
  Sender: ACADIA PHARMACEUTICALS
  Company Number: US-ACADIA PHARMACEUTICALS INC.-ACA-2025-PIM-002613

PATIENT
  Sex: Male

DRUGS (7)
  1. NUPLAZID [Suspect]
     Active Substance: PIMAVANSERIN TARTRATE
     Indication: Parkinson^s disease
     Dosage: 34 MILLIGRAM, QD
     Route: 048
     Dates: start: 202408
  2. ASPIRIN [Concomitant]
     Active Substance: ASPIRIN
  3. DONEPEZIL [Concomitant]
     Active Substance: DONEPEZIL
  4. ACETAMINOPHEN [Concomitant]
     Active Substance: ACETAMINOPHEN
  5. MEMANTINE [Concomitant]
     Active Substance: MEMANTINE
  6. CALCIUM [Concomitant]
     Active Substance: CALCIUM
  7. GLUCOSAMINE CHONDROITIN [CHONDROITIN SULFATE;GLUCOSAMINE] [Concomitant]

REACTIONS (1)
  - Constipation [Not Recovered/Not Resolved]
